FAERS Safety Report 8035592-7 (Version None)
Quarter: 2012Q1

REPORT INFORMATION
  Report Type: 
  Country: None (occurrence: None)
  Receive Date: 20120111
  Receipt Date: 20111229
  Transmission Date: 20120608
  Serious: Yes (Hospitalization, Other)
  Sender: FDA-Public Use
  Company Number: US-ELI_LILLY_AND_COMPANY-US201201001296

PATIENT
  Age: 57 Year
  Sex: Female

DRUGS (19)
  1. CLONAZEPAM [Concomitant]
     Dosage: 2 MG, OTHER
  2. OXYCODONE HCL [Concomitant]
     Dosage: 50 MG, UNK
  3. VITAMIN B-12 [Concomitant]
  4. PRILOSEC [Concomitant]
     Dosage: 80 MG, QD
  5. PREDNISONE TAB [Concomitant]
     Dosage: 5 MG, UNK
  6. FLUOXETINE (R-FLUOXETINE) [Concomitant]
  7. VITAMIN D [Concomitant]
     Dosage: 6000 DF, QD
  8. ROBAXIN [Concomitant]
     Dosage: 500 MG, TID
  9. ZOLOFT [Concomitant]
  10. FORTEO [Suspect]
     Dosage: 20 UG, QD
     Dates: start: 20110801
  11. LAMICTAL [Concomitant]
     Dosage: 300 MG, OTHER
  12. CALCIUM ACETATE [Concomitant]
     Dosage: 1600 DF, QD
  13. AMBIEN [Concomitant]
     Dosage: 10 MG, OTHER
  14. REMERON [Concomitant]
  15. FORTEO [Suspect]
     Indication: OSTEOPOROSIS
     Dosage: 20 UG, QD
     Dates: start: 20100723, end: 20110101
  16. HUMIRA [Concomitant]
     Dosage: UNK, 2/M
  17. OXYCODONE HCL [Concomitant]
     Dosage: 15 MG, PRN
  18. DURAGESIC-100 [Concomitant]
     Dosage: 75 MG, UNK
  19. SKELAXIN [Concomitant]

REACTIONS (7)
  - HIP FRACTURE [None]
  - SPINAL DISORDER [None]
  - DEVICE BREAKAGE [None]
  - SURGERY [None]
  - IMPAIRED HEALING [None]
  - SPINAL COMPRESSION FRACTURE [None]
  - DISLOCATION OF VERTEBRA [None]
